FAERS Safety Report 25432690 (Version 1)
Quarter: 2025Q2

REPORT INFORMATION
  Report Type: Spontaneous
  Country: US (occurrence: US)
  Receive Date: 20250613
  Receipt Date: 20250613
  Transmission Date: 20250716
  Serious: No
  Sender: RANBAXY
  Company Number: US-MIMS-SUN-2025-USA-54298

PATIENT
  Sex: Female

DRUGS (1)
  1. ABSORICA [Suspect]
     Active Substance: ISOTRETINOIN
     Indication: Product used for unknown indication
     Route: 065

REACTIONS (3)
  - Product contamination physical [Unknown]
  - Poor quality product administered [Unknown]
  - Product colour issue [Unknown]
